FAERS Safety Report 4517463-3 (Version None)
Quarter: 2004Q4

REPORT INFORMATION
  Report Type: 
  Country: None (occurrence: None)
  Receive Date: 20041022
  Receipt Date: 20040910
  Transmission Date: 20050328
  Serious: Yes (Other)
  Sender: FDA-Public Use
  Company Number: 2004056523

PATIENT
  Age: 47 Year
  Sex: Female

DRUGS (4)
  1. RELPAX [Suspect]
     Indication: MIGRAINE
     Dosage: 40 MG (40 MG, 1 IN 1 D)
     Dates: start: 20040101
  2. CANDESARTAN CILEXETIL (CANDESARTAN CILEXETIL) [Concomitant]
  3. HYDROCHLOROTHIAZIDE [Concomitant]
  4. NOGESIC FORTE (ACETYLSALICYLIC ACID, CAFFEINE, ORPHENADRINE CITRATE) [Concomitant]

REACTIONS (1)
  - RECTAL HAEMORRHAGE [None]
